FAERS Safety Report 9256880 (Version 1)
Quarter: 2013Q2

REPORT INFORMATION
  Report Type: Spontaneous
  Country: US (occurrence: None)
  Receive Date: 20130424
  Receipt Date: 20130424
  Transmission Date: 20140414
  Serious: Yes (Other)
  Sender: FDA-Public Use
  Company Number: USW201304-000035

PATIENT
  Sex: 0

DRUGS (1)
  1. MYOBLOC [Suspect]
     Dates: start: 2008

REACTIONS (1)
  - Glaucoma [None]
